FAERS Safety Report 14416974 (Version 1)
Quarter: 2018Q1

REPORT INFORMATION
  Report Type: Spontaneous
  Country: US (occurrence: US)
  Receive Date: 20180122
  Receipt Date: 20180122
  Transmission Date: 20180509
  Serious: No
  Sender: FDA-Public Use
  Company Number: US-PFIZER INC-2018026533

PATIENT
  Age: 59 Year
  Sex: Female

DRUGS (1)
  1. SOMATROPIN. [Suspect]
     Active Substance: SOMATROPIN
     Dosage: 0.2 MG, 1X/DAY

REACTIONS (7)
  - Drug intolerance [Unknown]
  - Muscular weakness [Recovered/Resolved]
  - Paraesthesia [Recovered/Resolved]
  - Drug hypersensitivity [Unknown]
  - Hypoaesthesia [Unknown]
  - Arthralgia [Recovered/Resolved]
  - Headache [Recovered/Resolved]
